FAERS Safety Report 7462497-2 (Version None)
Quarter: 2011Q2

REPORT INFORMATION
  Report Type: 
  Country: None (occurrence: None)
  Receive Date: 20110506
  Receipt Date: 20100224
  Transmission Date: 20111010
  Serious: No
  Sender: FDA-Public Use
  Company Number: US-BAYER-201015849NA

PATIENT
  Age: 28 Year
  Sex: Female

DRUGS (1)
  1. MIRENA [Suspect]
     Indication: CONTRACEPTION
     Dosage: 20 ?G/D, UNK
     Route: 015
     Dates: start: 20060301

REACTIONS (4)
  - VAGINAL HAEMORRHAGE [None]
  - BACK PAIN [None]
  - GENITAL HAEMORRHAGE [None]
  - ABDOMINAL PAIN [None]
